FAERS Safety Report 5605512-0 (Version None)
Quarter: 2008Q1

REPORT INFORMATION
  Report Type: 
  Country: None (occurrence: None)
  Receive Date: 20080129
  Receipt Date: 20080118
  Transmission Date: 20080703
  Serious: Yes (Hospitalization, Other)
  Sender: FDA-Public Use
  Company Number: UY-JNJFOC-20080105179

PATIENT
  Age: 70 Year
  Sex: Female

DRUGS (4)
  1. NIZORAL [Suspect]
     Indication: FUNGAL SKIN INFECTION
     Route: 065
  2. DERMAGLOS [Concomitant]
     Indication: DRUG USE FOR UNKNOWN INDICATION
     Route: 065
  3. SEDATIVE-HYPNOTIC DRUGS [Concomitant]
     Indication: DRUG USE FOR UNKNOWN INDICATION
     Route: 065
  4. THIAZIDE DIURETICS [Concomitant]
     Indication: DRUG USE FOR UNKNOWN INDICATION
     Route: 065

REACTIONS (2)
  - BRONCHOSPASM [None]
  - GASTROINTESTINAL HAEMORRHAGE [None]
